FAERS Safety Report 5711838-2 (Version None)
Quarter: 2008Q2

REPORT INFORMATION
  Report Type: 
  Country: None (occurrence: None)
  Receive Date: 20080416
  Receipt Date: 20080407
  Transmission Date: 20081010
  Serious: Yes (Hospitalization, Other)
  Sender: FDA-Public Use
  Company Number: 2007US002397

PATIENT
  Age: 28 Year
  Sex: Male

DRUGS (6)
  1. PROGRAF [Suspect]
     Indication: RENAL TRANSPLANT
  2. SIROLIMUS (SIROLIMUS) [Concomitant]
  3. PREDNISOLONE ACETATE [Concomitant]
  4. MYCOPHENOLATE MOFETIL [Concomitant]
  5. METHYLPREDNISOLONE [Concomitant]
  6. PREDNISOLONE [Concomitant]

REACTIONS (6)
  - ABDOMINAL PAIN [None]
  - DIARRHOEA [None]
  - GRAFT DYSFUNCTION [None]
  - MYALGIA [None]
  - NEPHROPATHY TOXIC [None]
  - PYELONEPHRITIS [None]
